FAERS Safety Report 4773357-X (Version None)
Quarter: 2005Q3

REPORT INFORMATION
  Report Type: 
  Country: None (occurrence: None)
  Receive Date: 20050916
  Receipt Date: 20050909
  Transmission Date: 20060218
  Serious: Yes (Hospitalization)
  Sender: FDA-Public Use
  Company Number: 175782

PATIENT
  Age: 59 Year
  Sex: Female
  Weight: 55.3388 kg

DRUGS (6)
  1. AVONEX [Suspect]
     Indication: MULTIPLE SCLEROSIS
     Dosage: 30 UG; QW; IM
     Route: 030
     Dates: start: 19960101, end: 20030801
  2. AVONEX [Suspect]
     Indication: MULTIPLE SCLEROSIS
     Dosage: 30 UG; QW; IM
     Route: 030
     Dates: start: 20030801
  3. LIPITOR [Concomitant]
  4. ACIPHEX [Concomitant]
  5. PREDNISONE [Concomitant]
  6. COUMADIN [Concomitant]

REACTIONS (15)
  - AORTIC CALCIFICATION [None]
  - ATRIAL FIBRILLATION [None]
  - BONE DISORDER [None]
  - CHOLELITHIASIS [None]
  - CONDITION AGGRAVATED [None]
  - CYSTITIS [None]
  - DUODENAL ULCER [None]
  - HAEMATEMESIS [None]
  - HAEMORRHAGE [None]
  - HYPOTENSION [None]
  - INFLUENZA LIKE ILLNESS [None]
  - MULTIPLE SCLEROSIS [None]
  - RECTAL HAEMORRHAGE [None]
  - UPPER LIMB FRACTURE [None]
  - WEIGHT DECREASED [None]
